FAERS Safety Report 9120979 (Version 6)
Quarter: 2014Q3

REPORT INFORMATION
  Report Type: Report from Study
  Country: ES (occurrence: ES)
  Receive Date: 20130225
  Receipt Date: 20140707
  Transmission Date: 20150326
  Serious: Yes (Hospitalization)
  Sender: FDA-Public Use
  Company Number: ES-EISAI INC-E2007-00932-CLI-ES

PATIENT
  Age: 52 Year
  Sex: Female
  Weight: 70.5 kg

DRUGS (15)
  1. LAMOTRIGINE. [Suspect]
     Active Substance: LAMOTRIGINE
     Route: 048
     Dates: start: 20121019
  2. VALPROIC ACID. [Suspect]
     Active Substance: VALPROIC ACID
     Dosage: 1100 MG PER DAY
     Route: 048
     Dates: start: 201210, end: 201210
  3. VALPROIC ACID. [Suspect]
     Active Substance: VALPROIC ACID
     Dosage: 1000 MG PER DAY (500 MG BID)
     Route: 048
     Dates: start: 20121023
  4. E2007 (PERAMPANEL) [Suspect]
     Active Substance: PERAMPANEL
     Route: 048
     Dates: start: 20100127, end: 20121024
  5. VALPROIC ACID. [Suspect]
     Active Substance: VALPROIC ACID
     Dosage: 1900 MG PER DAY
     Route: 048
     Dates: start: 201210, end: 201210
  6. TIAMINE [Concomitant]
     Route: 030
     Dates: start: 20121019
  7. LAMOTRIGINE. [Suspect]
     Active Substance: LAMOTRIGINE
     Dosage: 300 MG PER DAY
     Route: 048
     Dates: end: 20120928
  8. LAMOTRIGINE. [Suspect]
     Active Substance: LAMOTRIGINE
     Dosage: DOSE INCREASED BY 50 MG
     Route: 048
     Dates: start: 20121011, end: 20121018
  9. LAMOTRIGINE. [Suspect]
     Active Substance: LAMOTRIGINE
     Dosage: 400 MG PER DAY: 100 MG TID AND 50 MG BID
     Route: 048
     Dates: start: 20120929, end: 20121010
  10. VALPROIC ACID. [Suspect]
     Active Substance: VALPROIC ACID
     Dosage: 1300 MG: 500 MG BID AND 300 MG QD
     Route: 048
     Dates: start: 20101202, end: 201209
  11. VALPROIC ACID. [Suspect]
     Active Substance: VALPROIC ACID
     Dosage: 800 MG PER DAY
     Route: 048
     Dates: start: 20121019, end: 20121022
  12. LAMOTRIGINE. [Suspect]
     Active Substance: LAMOTRIGINE
     Indication: CONVULSION
     Dosage: DOSE UNKNOWN
     Route: 048
     Dates: start: 200812
  13. E2007 (PERAMPANEL) [Suspect]
     Active Substance: PERAMPANEL
     Indication: PARTIAL SEIZURES
     Dosage: DOUBLE BLIND - CONVERSION PHASE
     Route: 048
     Dates: start: 20090916, end: 20100126
  14. VALPROIC ACID. [Suspect]
     Active Substance: VALPROIC ACID
     Dosage: UNKNOWN
     Route: 048
     Dates: start: 200812, end: 20101201
  15. LAMOTRIGINE. [Suspect]
     Active Substance: LAMOTRIGINE
     Dosage: DOSE REDUCED (UNKNOWN)
     Route: 048
     Dates: start: 2010

REACTIONS (4)
  - Dysarthria [Recovered/Resolved]
  - Nausea [Recovered/Resolved]
  - Dizziness [Recovered/Resolved]
  - Psychotic disorder [Recovered/Resolved]

NARRATIVE: CASE EVENT DATE: 20121018
